FAERS Safety Report 20280521 (Version 2)
Quarter: 2022Q1

REPORT INFORMATION
  Report Type: Other
  Country: US (occurrence: None)
  Receive Date: 20220103
  Receipt Date: 20220105
  Transmission Date: 20220423
  Serious: No
  Sender: FDA-Public Use
  Company Number: US-ROCHE-2993629

PATIENT
  Age: 51 Year
  Sex: Female
  Weight: 51.756 kg

DRUGS (13)
  1. OCREVUS [Suspect]
     Active Substance: OCRELIZUMAB
     Indication: Primary progressive multiple sclerosis
     Dosage: 20/AUG/2020
     Route: 042
     Dates: start: 2019
  2. OCREVUS [Suspect]
     Active Substance: OCRELIZUMAB
     Indication: Relapsing multiple sclerosis
     Dosage: 300 MG FIRST DOSE THEN 300 MG THEN 15 DAY 300MG
     Route: 042
  3. GABAPENTIN [Concomitant]
     Active Substance: GABAPENTIN
     Indication: Neuropathy peripheral
     Route: 048
     Dates: start: 2010
  4. GABAPENTIN [Concomitant]
     Active Substance: GABAPENTIN
     Route: 048
     Dates: start: 20181217
  5. DULOXETINE [Concomitant]
     Active Substance: DULOXETINE
     Route: 048
     Dates: start: 2020
  6. VITAMIN D3 [Concomitant]
     Active Substance: CHOLECALCIFEROL
     Route: 048
  7. VITAMIN D3 [Concomitant]
     Active Substance: CHOLECALCIFEROL
     Route: 048
     Dates: start: 20181030
  8. MUCINEX [Concomitant]
     Active Substance: GUAIFENESIN
     Dosage: 6 CAPLETS AT NIGHT
  9. TYLENOL EXTRA STRENGTH [Concomitant]
     Active Substance: ACETAMINOPHEN
     Indication: Headache
  10. ALPRAZOLAM [Concomitant]
     Active Substance: ALPRAZOLAM
     Route: 048
     Dates: start: 20180802
  11. CELEXA [Concomitant]
     Active Substance: CITALOPRAM HYDROBROMIDE
     Route: 048
  12. MODERNA COVID-19 VACCINE [Concomitant]
     Active Substance: ELASOMERAN
  13. TIZANIDINE [Concomitant]
     Active Substance: TIZANIDINE

REACTIONS (2)
  - COVID-19 [Not Recovered/Not Resolved]
  - Fatigue [Unknown]

NARRATIVE: CASE EVENT DATE: 20211222
